FAERS Safety Report 24710065 (Version 1)
Quarter: 2024Q4

REPORT INFORMATION
  Report Type: Other
  Country: TR (occurrence: TR)
  Receive Date: 20241209
  Receipt Date: 20241209
  Transmission Date: 20250115
  Serious: Yes (Other)
  Sender: ANI
  Company Number: TR-ANIPHARMA-013113

PATIENT
  Age: 37 Year
  Sex: Male

DRUGS (1)
  1. CLOBETASOL [Suspect]
     Active Substance: CLOBETASOL
     Indication: Psoriasis

REACTIONS (2)
  - Adrenal insufficiency [Recovered/Resolved]
  - Cushing^s syndrome [Unknown]
